FAERS Safety Report 21541464 (Version 1)
Quarter: 2022Q4

REPORT INFORMATION
  Report Type: Spontaneous
  Country: US (occurrence: None)
  Receive Date: 20221101
  Receipt Date: 20221101
  Transmission Date: 20230113
  Serious: No
  Sender: FDA-Public Use
  Company Number: None

PATIENT
  Age: 82 Year
  Sex: Male
  Weight: 73.89 kg

DRUGS (13)
  1. ABIRATERONE [Suspect]
     Active Substance: ABIRATERONE
     Indication: Prostate cancer
     Dosage: FREQUENCY : DAILY;?
     Route: 048
     Dates: start: 202111
  2. ASPIRIN [Concomitant]
  3. BASAGLAR [Concomitant]
  4. CARVEDILOL [Concomitant]
  5. CLOPIDOGREL [Concomitant]
  6. FERROUS GLUCONATE [Concomitant]
  7. JANUMET XR [Concomitant]
  8. METHIMAZOLE [Concomitant]
  9. NOVOLOG [Concomitant]
  10. RAMIPRIL [Concomitant]
  11. STOOL SOFTNER [Concomitant]
  12. TAMSULOSIN [Concomitant]
  13. VITAMIN D [Concomitant]

REACTIONS (3)
  - Prostatic specific antigen abnormal [None]
  - Prostatic specific antigen increased [None]
  - Prostatic specific antigen decreased [None]
